FAERS Safety Report 8323161-0 (Version None)
Quarter: 2012Q1

REPORT INFORMATION
  Report Type: 
  Country: None (occurrence: None)
  Receive Date: 20120315
  Receipt Date: 20110601
  Transmission Date: 20120608
  Serious: No
  Sender: FDA-Public Use
  Company Number: PHHY2010US79295

PATIENT
  Age: 46 Year
  Sex: Female
  Weight: 55.9 kg

DRUGS (7)
  1. GABAPENTIN [Concomitant]
  2. BACLOFEN [Concomitant]
  3. MINOCYCLIN (MINOCYCLINE HYDROCHLORIDE) [Concomitant]
  4. LAMICTAL [Concomitant]
  5. HYDROCHLOROTHIAZIDE [Concomitant]
  6. PROVIGIL [Concomitant]
  7. GILENYA [Suspect]
     Indication: MULTIPLE SCLEROSIS
     Dosage: 0.5 MG, QD, ORAL
     Route: 048
     Dates: start: 20101117

REACTIONS (4)
  - ORAL HERPES [None]
  - FEELING HOT [None]
  - INFLUENZA [None]
  - WHITE BLOOD CELL COUNT DECREASED [None]
